FAERS Safety Report 13496436 (Version 1)
Quarter: 2017Q2

REPORT INFORMATION
  Report Type: Spontaneous
  Country: US (occurrence: US)
  Receive Date: 20170428
  Receipt Date: 20170428
  Transmission Date: 20170830
  Serious: Yes (Life-Threatening, Hospitalization, Other)
  Sender: FDA-Public Use
  Company Number: None

PATIENT
  Age: 61 Year
  Sex: Female
  Weight: 51.75 kg

DRUGS (11)
  1. ADVAIR HFA [Concomitant]
     Active Substance: FLUTICASONE PROPIONATE\SALMETEROL XINAFOATE
  2. HYDROCODONE [Concomitant]
     Active Substance: HYDROCODONE
  3. BUPROPION. [Concomitant]
     Active Substance: BUPROPION
  4. NUVIGAL [Concomitant]
  5. METHADONE [Concomitant]
     Active Substance: METHADONE HYDROCHLORIDE
  6. VIT. B-12 [Concomitant]
  7. TORSEMIDE. [Concomitant]
     Active Substance: TORSEMIDE
  8. BONIVA [Concomitant]
     Active Substance: IBANDRONATE SODIUM
  9. OMEPROZOLE [Concomitant]
     Active Substance: OMEPRAZOLE
  10. LISINONCIL [Concomitant]
  11. GABAPENTIN. [Suspect]
     Active Substance: GABAPENTIN
     Indication: FIBROMYALGIA
     Dosage: ?          QUANTITY:1 TABLET(S);?
     Route: 048
     Dates: start: 20170425, end: 20170425

REACTIONS (9)
  - Somnolence [None]
  - Muscle twitching [None]
  - Feeling abnormal [None]
  - Dyspnoea [None]
  - Memory impairment [None]
  - Drug withdrawal syndrome [None]
  - Agitation [None]
  - Speech disorder [None]
  - Formication [None]

NARRATIVE: CASE EVENT DATE: 20170427
